FAERS Safety Report 18139561 (Version 1)
Quarter: 2020Q3

REPORT INFORMATION
  Report Type: Spontaneous
  Country: US (occurrence: US)
  Receive Date: 20200812
  Receipt Date: 20200812
  Transmission Date: 20201103
  Serious: No
  Sender: FDA-Public Use
  Company Number: US-PFIZER INC-2020306345

PATIENT
  Age: 85 Year
  Sex: Female
  Weight: 45.36 kg

DRUGS (1)
  1. TOLTERODINE TARTRATE. [Suspect]
     Active Substance: TOLTERODINE TARTRATE
     Indication: POLLAKIURIA
     Dosage: 2 MG, 1X/DAY (ONCE A DAY AT NIGHT BEFORE BED )
     Route: 048
     Dates: start: 20200724

REACTIONS (1)
  - Drug ineffective [Unknown]
